FAERS Safety Report 8408480-1 (Version None)
Quarter: 2012Q2

REPORT INFORMATION
  Report Type: 
  Country: None (occurrence: None)
  Receive Date: 20120604
  Receipt Date: 20111019
  Transmission Date: 20120825
  Serious: No
  Sender: FDA-Public Use
  Company Number: US-COVIDIEN/TYCO HEALTHCARE/MALLINCKRODT-T201102427

PATIENT

DRUGS (1)
  1. OCTREOSCAN [Suspect]
     Indication: RADIOISOTOPE SCAN
     Dosage: 6.4 MCI, SINGLE
     Route: 042
     Dates: start: 20111019, end: 20111019

REACTIONS (2)
  - FLUSHING [None]
  - FEELING ABNORMAL [None]
